FAERS Safety Report 26108205 (Version 2)
Quarter: 2025Q4

REPORT INFORMATION
  Report Type: Report from Study
  Country: KR (occurrence: KR)
  Receive Date: 20251201
  Receipt Date: 20251204
  Transmission Date: 20260117
  Serious: Yes (Death, Hospitalization, Other)
  Sender: NOVARTIS
  Company Number: KR-002147023-NVSC2025KR178815

PATIENT
  Age: 71 Year
  Sex: Male
  Weight: 62 kg

DRUGS (19)
  1. PLUVICTO [Suspect]
     Active Substance: LUTETIUM LU-177 VIPIVOTIDE TETRAXETAN
     Indication: Hormone-refractory prostate cancer
     Dosage: 200 MCI
     Route: 042
     Dates: start: 20250925, end: 20250925
  2. FERINJECT [Concomitant]
     Active Substance: FERRIC CARBOXYMALTOSE
     Indication: Iron deficiency anaemia
     Dosage: 1000 MG
     Route: 065
     Dates: start: 20240618
  3. DARBEPOETIN ALFA [Concomitant]
     Active Substance: DARBEPOETIN ALFA
     Indication: Iron deficiency anaemia
     Dosage: 360 UG
     Route: 065
     Dates: start: 20240618
  4. MEGACE [Concomitant]
     Active Substance: MEGESTROL ACETATE
     Indication: Prophylaxis
     Dosage: 10 ML
     Route: 065
     Dates: start: 20250305
  5. IMIPRAMINE [Concomitant]
     Active Substance: IMIPRAMINE
     Indication: Prophylaxis
     Dosage: 1 DOSAGE FORM (YOUNGPOONG)
     Route: 065
     Dates: start: 20120523
  6. Cicor [Concomitant]
     Indication: Hyperlipidaemia
     Dosage: 1000 MG
     Route: 065
     Dates: start: 20180723
  7. LAFUTIDINE [Concomitant]
     Active Substance: LAFUTIDINE
     Indication: Prophylaxis
     Dosage: 10 MG
     Route: 065
     Dates: start: 20200302
  8. Dicamax [Concomitant]
     Indication: Prophylaxis
     Dosage: 1 DOSAGE FORM
     Route: 065
     Dates: start: 20210730
  9. Esomezol [Concomitant]
     Indication: Prophylaxis
     Dosage: 20 MG
     Route: 065
     Dates: start: 20201027
  10. URSODIOL [Concomitant]
     Active Substance: URSODIOL
     Indication: Prophylaxis
     Dosage: 100 MG
     Route: 065
     Dates: start: 20250317
  11. OXYCODONE HYDROCHLORIDE [Concomitant]
     Active Substance: OXYCODONE HYDROCHLORIDE
     Indication: Prophylaxis
     Dosage: 5 MG
     Route: 065
     Dates: start: 20250924
  12. NALOXONE HYDROCHLORIDE\OXYCODONE HYDROCHLORIDE [Concomitant]
     Active Substance: NALOXONE HYDROCHLORIDE\OXYCODONE HYDROCHLORIDE
     Indication: Prophylaxis
     Dosage: 1 DOSAGE FORM
     Route: 065
     Dates: start: 20250924
  13. OMACOR [Concomitant]
     Active Substance: OMEGA-3-ACID ETHYL ESTERS
     Indication: Hyperlipidaemia
     Dosage: 1000 MG
     Route: 065
     Dates: start: 20250924
  14. DIGOXIN [Concomitant]
     Active Substance: DIGOXIN
     Indication: Atrial fibrillation
     Dosage: 0.125 MG
     Route: 065
     Dates: start: 20180618
  15. LASIX [Concomitant]
     Active Substance: FUROSEMIDE
     Indication: Atrial fibrillation
     Dosage: 20 MG
     Route: 065
     Dates: start: 20180617
  16. DIOVAN [Concomitant]
     Active Substance: VALSARTAN
     Indication: Atrial fibrillation
     Dosage: 80 MG
     Route: 065
     Dates: start: 20211209
  17. CARVEDILOL [Concomitant]
     Active Substance: CARVEDILOL
     Indication: Atrial fibrillation
     Dosage: 12.5 MG
     Route: 065
     Dates: start: 20201026
  18. CRESTOR [Concomitant]
     Active Substance: ROSUVASTATIN CALCIUM
     Indication: Hyperlipidaemia
     Dosage: 5 MG
     Route: 065
     Dates: start: 20201027
  19. XARELTO [Concomitant]
     Active Substance: RIVAROXABAN
     Indication: Atrial fibrillation
     Dosage: 15 MG
     Route: 065
     Dates: start: 20200922

REACTIONS (4)
  - Pneumonia [Fatal]
  - Acute kidney injury [Fatal]
  - Thrombocytopenia [Fatal]
  - Hypercalcaemia [Recovered/Resolved]

NARRATIVE: CASE EVENT DATE: 20251027
